FAERS Safety Report 5268759-1 (Version None)
Quarter: 2007Q1

REPORT INFORMATION
  Report Type: 
  Country: None (occurrence: None)
  Receive Date: 20070315
  Receipt Date: 20070315
  Transmission Date: 20070707
  Serious: Yes (Other)
  Sender: FDA-Public Use
  Company Number: None

PATIENT
  Sex: Male

DRUGS (1)
  1. THERATEARS LUBRICATION EYE DROPS [Suspect]
     Dates: start: 20061211

REACTIONS (1)
  - EYE INFECTION [None]
